FAERS Safety Report 13761372 (Version 7)
Quarter: 2018Q1

REPORT INFORMATION
  Report Type: Spontaneous
  Country: US (occurrence: US)
  Receive Date: 20170717
  Receipt Date: 20180308
  Transmission Date: 20180508
  Serious: Yes (Hospitalization)
  Sender: FDA-Public Use
  Company Number: US-PFIZER INC-2017307777

PATIENT
  Age: 79 Year
  Sex: Female
  Weight: 66.67 kg

DRUGS (7)
  1. LYRICA [Suspect]
     Active Substance: PREGABALIN
     Dosage: 300 MG, UNK
  2. CELEBREX [Concomitant]
     Active Substance: CELECOXIB
     Indication: ARTHRITIS
     Dosage: 100 MG, 1X/DAY
     Route: 048
  3. LYRICA [Suspect]
     Active Substance: PREGABALIN
     Dosage: 275 MG, UNK
  4. GABAPENTIN. [Concomitant]
     Active Substance: GABAPENTIN
     Indication: RESTLESS LEGS SYNDROME
     Dosage: 900 MG, 1X/DAY, (3 CAPSULES TAKEN BY MOUTH AT BEDTIME, WHEN SHE^S IN THE BED, AROUND 11 PM)
     Route: 048
  5. LYRICA [Suspect]
     Active Substance: PREGABALIN
     Indication: BACK DISORDER
     Dosage: 300 MG, 2X/DAY
     Route: 048
     Dates: end: 20170703
  6. LORTAB [Concomitant]
     Active Substance: ACETAMINOPHEN\HYDROCODONE BITARTRATE
     Indication: PAIN
     Dosage: UNK, AS NEEDED, (EVERY 4 HOURS AS NEEDED)
     Route: 048
  7. LYRICA [Suspect]
     Active Substance: PREGABALIN
     Indication: RESTLESS LEGS SYNDROME
     Dosage: 25 MG, UNK

REACTIONS (10)
  - Feeling abnormal [Unknown]
  - Product use in unapproved indication [Unknown]
  - Vomiting [Unknown]
  - Malaise [Unknown]
  - Decreased appetite [Unknown]
  - Chills [Recovered/Resolved]
  - Tremor [Recovered/Resolved]
  - Intentional product misuse [Unknown]
  - Expired product administered [Unknown]
  - Drug withdrawal syndrome [Unknown]

NARRATIVE: CASE EVENT DATE: 20170711
